FAERS Safety Report 7380416-4 (Version None)
Quarter: 2011Q1

REPORT INFORMATION
  Report Type: 
  Country: None (occurrence: None)
  Receive Date: 20110329
  Receipt Date: 20110318
  Transmission Date: 20110831
  Serious: Yes (Death, Other)
  Sender: FDA-Public Use
  Company Number: CN-ROCHE-767179

PATIENT

DRUGS (4)
  1. MYCOPHENOLATE MOFETIL [Suspect]
     Dosage: FOR WEIGHT { OR }60KG, 1.5G OR 2G A DAY RESPECTIVLEY IN THE 1ST 3M, THEN DOSAGE ADJUSTED.
     Route: 065
  2. DACLIZUMAB [Suspect]
     Route: 065
  3. METHYLPREDNISOLONE [Suspect]
     Route: 065
  4. PREDNISONE [Suspect]
     Dosage: THE INITIAL DOSE AT 30 MG ONCE A DAY, AND THEN REDUCED GRADUALLY TO MAINTENANCE DOSE AT 10 MG A DAY.
     Route: 048

REACTIONS (5)
  - RESPIRATORY FAILURE [None]
  - HEPATITIS C [None]
  - LIVER INJURY [None]
  - LUNG INFECTION [None]
  - URINARY TRACT INFECTION [None]
